FAERS Safety Report 10345642 (Version 1)
Quarter: 2014Q3

REPORT INFORMATION
  Report Type: Spontaneous
  Country: US (occurrence: US)
  Receive Date: 20140728
  Receipt Date: 20140728
  Transmission Date: 20150326
  Serious: Yes (Other)
  Sender: FDA-Public Use
  Company Number: PHEH2014US014606

PATIENT
  Sex: Female

DRUGS (7)
  1. DILANTIN [Suspect]
     Active Substance: PHENYTOIN
     Indication: MUSCLE SPASMS
     Dosage: 600 MG, UNK
  2. RECLAST [Suspect]
     Active Substance: ZOLEDRONIC ACID
     Dosage: UNK
     Route: 042
     Dates: start: 20140716
  3. ZYRTEC [Suspect]
     Active Substance: CETIRIZINE HYDROCHLORIDE
     Dosage: 10 ML, UNK
  4. ZYRTEC [Suspect]
     Active Substance: CETIRIZINE HYDROCHLORIDE
     Indication: CONVULSION
     Dosage: UNK
  5. ZYRTEC [Suspect]
     Active Substance: CETIRIZINE HYDROCHLORIDE
     Dosage: 15 ML, UNK
  6. RANITIDINE [Concomitant]
     Active Substance: RANITIDINE\RANITIDINE HYDROCHLORIDE
     Dosage: 20 ML, UNK
  7. MULTI-VIT [Concomitant]
     Active Substance: VITAMINS
     Dosage: 20 ML, UNK

REACTIONS (32)
  - Body temperature fluctuation [Unknown]
  - Toxicity to various agents [Unknown]
  - Pyrexia [Not Recovered/Not Resolved]
  - Abdominal pain upper [Unknown]
  - Fibromyalgia [Unknown]
  - Psychogenic seizure [Unknown]
  - Fall [Unknown]
  - Respiratory rate increased [Unknown]
  - Sedation [Unknown]
  - Cough [Recovered/Resolved]
  - Musculoskeletal pain [Unknown]
  - Joint stiffness [Unknown]
  - Head discomfort [Recovered/Resolved]
  - Renal cyst [Unknown]
  - Hypokinesia [Not Recovered/Not Resolved]
  - Pain [Unknown]
  - Conjunctivitis [Not Recovered/Not Resolved]
  - Hypotension [Unknown]
  - Head injury [Unknown]
  - Hot flush [Unknown]
  - Rhinorrhoea [Recovered/Resolved]
  - Vocal cord disorder [Unknown]
  - Chest discomfort [Unknown]
  - Hypoaesthesia [Unknown]
  - Bone density decreased [Unknown]
  - Pain in jaw [Unknown]
  - Arthralgia [Unknown]
  - Pain in extremity [Unknown]
  - Bone pain [Recovered/Resolved]
  - Infection [Unknown]
  - Fatigue [Unknown]
  - Abdominal distension [Unknown]
